FAERS Safety Report 8622009-4 (Version None)
Quarter: 2012Q3

REPORT INFORMATION
  Report Type: 
  Country: None (occurrence: None)
  Receive Date: 20120823
  Receipt Date: 20120823
  Transmission Date: 20120928
  Serious: Yes (Other)
  Sender: FDA-Public Use
  Company Number: None

PATIENT
  Sex: Female

DRUGS (2)
  1. TEMODAR [Suspect]
     Indication: MALIGNANT MELANOMA
     Dosage: 240MG HS FOR 5 DAYS PO
     Route: 048
     Dates: start: 20120730, end: 20120821
  2. PROMETHAZINE [Suspect]
     Indication: METASTASES TO LUNG
     Dosage: 25MG HS AND Q6HPRN PO
     Route: 048

REACTIONS (2)
  - SOMNOLENCE [None]
  - FATIGUE [None]
